FAERS Safety Report 11036856 (Version 1)
Quarter: 2015Q2

REPORT INFORMATION
  Report Type: Spontaneous
  Country: US (occurrence: None)
  Receive Date: 20150415
  Receipt Date: 20150415
  Transmission Date: 20150821
  Serious: Yes (Death)
  Sender: FDA-Public Use
  Company Number: None

PATIENT
  Age: 50 Year
  Sex: Male

DRUGS (1)
  1. CAPECITABINE. [Suspect]
     Active Substance: CAPECITABINE
     Indication: RECTAL CANCER
     Dosage: 1 TAB (150 MG) + 3 TAB OF 500MG, BID, MON-FRIDAY
     Route: 048

REACTIONS (2)
  - Vasospasm [None]
  - Arrhythmia [None]

NARRATIVE: CASE EVENT DATE: 20150322
